FAERS Safety Report 14189889 (Version 1)
Quarter: 2017Q4

REPORT INFORMATION
  Report Type: Spontaneous
  Country: US (occurrence: US)
  Receive Date: 20171115
  Receipt Date: 20171115
  Transmission Date: 20180321
  Serious: No
  Sender: FDA-Public Use
  Company Number: US-PFIZER INC-2017490437

PATIENT
  Age: 47 Year
  Sex: Female
  Weight: 50.8 kg

DRUGS (2)
  1. SERTRALINE HCL [Suspect]
     Active Substance: SERTRALINE HYDROCHLORIDE
     Indication: ANXIETY
     Dosage: 25MG TABLET ONCE A DAY
     Route: 048
     Dates: start: 20171106, end: 20171109
  2. IRON [Interacting]
     Active Substance: IRON
     Indication: IRON DEFICIENCY ANAEMIA
     Dosage: 325MG ONE TABLET ONCE A DAY
     Route: 048
     Dates: start: 2017

REACTIONS (6)
  - Paraesthesia [Recovered/Resolved]
  - Fatigue [Unknown]
  - Drug interaction [Unknown]
  - Feeling abnormal [Recovered/Resolved]
  - Diarrhoea [Not Recovered/Not Resolved]
  - Faeces discoloured [Unknown]

NARRATIVE: CASE EVENT DATE: 201711
